FAERS Safety Report 7238167 (Version 4)
Quarter: 2020Q3

REPORT INFORMATION
  Report Type: Report from Study
  Country: GB (occurrence: GB)
  Receive Date: 20100106
  Receipt Date: 20100128
  Transmission Date: 20201105
  Serious: Yes (Hospitalization)
  Sender: FDA-Public Use
  Company Number: GB-WYE-H12811409

PATIENT
  Age: 59 Year
  Sex: Male
  Weight: 92.8 kg

DRUGS (3)
  1. BEVACIZUMAB. [Suspect]
     Active Substance: BEVACIZUMAB
     Indication: METASTATIC RENAL CELL CARCINOMA
     Route: 042
     Dates: start: 20090603, end: 20091230
  2. PARACETAMOL [Concomitant]
     Active Substance: ACETAMINOPHEN
     Indication: PROPHYLAXIS
     Dosage: UNKNOWN
     Dates: start: 20090603
  3. INTERFERON ALFA NOS [Suspect]
     Active Substance: INTERFERON ALFA-2A OR INTERFERON ALFA-2B
     Indication: RENAL CELL CARCINOMA
     Dosage: 9 MU, 3 TIMES WEEKLY, M, W, F
     Route: 058
     Dates: start: 20090603, end: 20091228

REACTIONS (5)
  - Vision blurred [None]
  - Aphasia [None]
  - Disorientation [None]
  - Transient ischaemic attack [Recovered/Resolved]
  - Headache [None]

NARRATIVE: CASE EVENT DATE: 20091230
